FAERS Safety Report 8440467-5 (Version None)
Quarter: 2012Q2

REPORT INFORMATION
  Report Type: 
  Country: None (occurrence: None)
  Receive Date: 20120615
  Receipt Date: 20120607
  Transmission Date: 20120825
  Serious: Yes (Hospitalization, Other)
  Sender: FDA-Public Use
  Company Number: US-GLAXOSMITHKLINE-A0981167A

PATIENT
  Age: 58 Year
  Sex: Female

DRUGS (7)
  1. ATIVAN [Concomitant]
     Indication: ANXIETY
     Dosage: 1MG AS REQUIRED
     Route: 048
     Dates: start: 20100914
  2. VENTOLIN [Suspect]
     Indication: CHRONIC OBSTRUCTIVE PULMONARY DISEASE
     Dates: start: 20120116
  3. BLINDED TRIAL MEDICATION [Suspect]
     Indication: CHRONIC OBSTRUCTIVE PULMONARY DISEASE
     Route: 048
     Dates: start: 20120207
  4. SPIRIVA [Concomitant]
     Indication: CHRONIC OBSTRUCTIVE PULMONARY DISEASE
     Dosage: 18MCG PER DAY
     Dates: start: 20091130
  5. ZANTAC [Concomitant]
     Indication: GASTROOESOPHAGEAL REFLUX DISEASE
     Dosage: 150MG PER DAY
     Dates: start: 20111129
  6. ALLEGRA [Concomitant]
     Indication: RHINITIS ALLERGIC
     Dosage: 60MG AS REQUIRED
     Route: 048
     Dates: start: 20110801
  7. ADVAIR DISKUS 100/50 [Suspect]
     Indication: CHRONIC OBSTRUCTIVE PULMONARY DISEASE
     Dates: start: 20120116

REACTIONS (2)
  - OXYGEN SATURATION DECREASED [None]
  - ABDOMINAL PAIN [None]
